FAERS Safety Report 17336468 (Version 4)
Quarter: 2020Q4

REPORT INFORMATION
  Report Type: Spontaneous
  Country: JP (occurrence: JP)
  Receive Date: 20200128
  Receipt Date: 20201210
  Transmission Date: 20210113
  Serious: Yes (Other)
  Sender: FDA-Public Use
  Company Number: JP-TEVA-2020-JP-1176443

PATIENT
  Age: 65 Year
  Sex: Female

DRUGS (7)
  1. AZILECT [Suspect]
     Active Substance: RASAGILINE MESYLATE
     Indication: PARKINSON^S DISEASE
     Dosage: 1 MILLIGRAM DAILY; QD
     Route: 048
     Dates: start: 20191218, end: 20191230
  2. MENESIT [Suspect]
     Active Substance: CARBIDOPA\LEVODOPA
     Indication: PARKINSON^S DISEASE
     Route: 048
  3. NOURIAST [Concomitant]
     Active Substance: ISTRADEFYLLINE
  4. LYRICA [Concomitant]
     Active Substance: PREGABALIN
  5. SYMMETREL [Concomitant]
     Active Substance: AMANTADINE HYDROCHLORIDE
  6. COMTAN [Concomitant]
     Active Substance: ENTACAPONE
  7. LOXONIN [Concomitant]
     Active Substance: LOXOPROFEN SODIUM
     Dosage: TAPE (INCLUDING POULTICE)
     Route: 065

REACTIONS (1)
  - Sudden onset of sleep [Recovered/Resolved]

NARRATIVE: CASE EVENT DATE: 20191230
